FAERS Safety Report 15752733 (Version 1)
Quarter: 2018Q4

REPORT INFORMATION
  Report Type: Spontaneous
  Country: US (occurrence: US)
  Receive Date: 20181221
  Receipt Date: 20181221
  Transmission Date: 20190205
  Serious: Yes (Hospitalization)
  Sender: FDA-Public Use
  Company Number: US-BIOMARINAP-US-2018-121279

PATIENT
  Sex: Male

DRUGS (1)
  1. VIMIZIM [Suspect]
     Active Substance: ELOSULFASE ALFA
     Indication: MUCOPOLYSACCHARIDOSIS IV
     Dosage: 30 MILLIGRAM, QW
     Route: 042
     Dates: start: 20161019

REACTIONS (2)
  - Ankle operation [Recovered/Resolved]
  - Knee operation [Recovered/Resolved]
